FAERS Safety Report 9294862 (Version 1)
Quarter: 2013Q1

REPORT INFORMATION
  Report Type: Spontaneous
  Country: US (occurrence: None)
  Receive Date: 20121227
  Receipt Date: 20121227
  Transmission Date: 20140127
  Serious: No
  Sender: FDA-Public Use
  Company Number: PHEH2012US022769

PATIENT
  Age: 13 Year
  Sex: Female

DRUGS (6)
  1. AFINITOR [Suspect]
     Indication: TUBEROUS SCLEROSIS
     Route: 048
  2. AFINITOR [Suspect]
     Indication: BRAIN NEOPLASM BENIGN
     Route: 048
  3. FELBATOL (FELBAMATE) [Concomitant]
  4. TRILEPTAL (OXCARBAZEPINE) [Concomitant]
  5. RESPERIDONE (RESPERIDONE) [Concomitant]
  6. SEROQUEL (QUETIAPINE FUMARATE) [Concomitant]

REACTIONS (1)
  - Ear infection [None]
